FAERS Safety Report 12526671 (Version 1)
Quarter: 2016Q3

REPORT INFORMATION
  Report Type: Spontaneous
  Country: US (occurrence: None)
  Receive Date: 20160701
  Receipt Date: 20160701
  Transmission Date: 20161109
  Serious: No
  Sender: FDA-Public Use
  Company Number: None

PATIENT
  Age: 55 Year
  Sex: Male

DRUGS (5)
  1. OXYCODONE [Concomitant]
     Active Substance: OXYCODONE
  2. VOTRIENT [Concomitant]
     Active Substance: PAZOPANIB HYDROCHLORIDE
  3. SUTENT [Concomitant]
     Active Substance: SUNITINIB MALATE
  4. CLONAZEPAM. [Concomitant]
     Active Substance: CLONAZEPAM
  5. INLYTA [Suspect]
     Active Substance: AXITINIB
     Indication: RENAL CANCER
     Route: 048
     Dates: start: 20160601

REACTIONS (2)
  - Drug dose omission [None]
  - Neoplasm progression [None]

NARRATIVE: CASE EVENT DATE: 201606
